FAERS Safety Report 9586377 (Version 1)
Quarter: 2013Q4

REPORT INFORMATION
  Report Type: Report from Study
  Country: BR (occurrence: BR)
  Receive Date: 20131003
  Receipt Date: 20131003
  Transmission Date: 20140711
  Serious: Yes (Other)
  Sender: FDA-Public Use
  Company Number: PHHY2013BR108384

PATIENT
  Age: 48 Year
  Sex: Female

DRUGS (6)
  1. MIFLASONE [Suspect]
     Indication: RESPIRATORY DISORDER
     Dosage: 400 UG, BID
  2. FLUOXETINE [Suspect]
     Indication: RESPIRATORY DEPRESSION
     Dosage: 20 MG, PER DAY
  3. SALMETEROL/FLUTICASONPROPIONAAT [Suspect]
     Dosage: (50/250) BID
  4. LOSARTAN [Concomitant]
     Dosage: UNK UKN, UNK
  5. HYDROCHLOROTHIAZIDE [Concomitant]
     Dosage: UNK UKN, UNK
  6. SALBUTAMOL [Concomitant]
     Dosage: 400 UG, UNK

REACTIONS (5)
  - Chronic obstructive pulmonary disease [Unknown]
  - Hypoventilation [Unknown]
  - Dyspnoea [Unknown]
  - Obstructive airways disorder [Unknown]
  - Respiratory disorder [Unknown]
